FAERS Safety Report 19747300 (Version 2)
Quarter: 2021Q3

REPORT INFORMATION
  Report Type: Report from Study
  Country: US (occurrence: US)
  Receive Date: 20210825
  Receipt Date: 20210903
  Transmission Date: 20211014
  Serious: No
  Sender: FDA-Public Use
  Company Number: NVSC2021US190516

PATIENT
  Sex: Female

DRUGS (1)
  1. ENTRESTO [Suspect]
     Active Substance: SACUBITRIL\VALSARTAN
     Indication: PRODUCT USED FOR UNKNOWN INDICATION
     Dosage: 1 DF, BID, (24/26MG)
     Route: 048
     Dates: start: 20210528

REACTIONS (7)
  - Dyspnoea [Unknown]
  - Blood glucose decreased [Unknown]
  - Product dose omission issue [Unknown]
  - Energy increased [Recovering/Resolving]
  - Blood cholesterol decreased [Unknown]
  - Cough [Unknown]
  - Nasopharyngitis [Unknown]
